FAERS Safety Report 12251974 (Version 2)
Quarter: 2016Q2

REPORT INFORMATION
  Report Type: Spontaneous
  Country: CA (occurrence: CA)
  Receive Date: 20160411
  Receipt Date: 20160422
  Transmission Date: 20160815
  Serious: Yes (Other)
  Sender: FDA-Public Use
  Company Number: CA-BEH-2016060507

PATIENT
  Age: 6 Year
  Sex: Male
  Weight: 22 kg

DRUGS (1)
  1. PRIVIGEN [Suspect]
     Active Substance: HUMAN IMMUNOGLOBULIN G
     Indication: KAWASAKI^S DISEASE
     Dosage: 11 CC/HR (0 TO 30 MIN);  52.8 CC/HR (30 TO 45 MIN)
     Route: 042
     Dates: start: 20160117, end: 20160117

REACTIONS (10)
  - Tachycardia [Recovered/Resolved]
  - Generalised erythema [Unknown]
  - Chills [Recovered/Resolved]
  - Oxygen saturation abnormal [Recovered/Resolved]
  - Hypersensitivity [Recovered/Resolved]
  - Pyrexia [Recovered/Resolved]
  - Tachypnoea [Recovered/Resolved]
  - Moaning [Unknown]
  - Dyspnoea [Recovered/Resolved]
  - Rash [Unknown]

NARRATIVE: CASE EVENT DATE: 20160117
